FAERS Safety Report 8623883-8 (Version None)
Quarter: 2012Q3

REPORT INFORMATION
  Report Type: 
  Country: None (occurrence: None)
  Receive Date: 20120827
  Receipt Date: 20120815
  Transmission Date: 20120928
  Serious: Yes (Hospitalization, Other)
  Sender: FDA-Public Use
  Company Number: US-ELI_LILLY_AND_COMPANY-US201202005127

PATIENT
  Sex: Female

DRUGS (11)
  1. CLARINEX [Concomitant]
     Dosage: UNK, QD
  2. FORTEO [Suspect]
     Dosage: 20 UG, QD
  3. VITAMIN D [Concomitant]
     Dosage: UNK
  4. FORTEO [Suspect]
     Indication: OSTEOPOROSIS
     Dosage: 20 UG, QD
  5. LEVOTHYROXINE SODIUM [Concomitant]
     Dosage: 0.05 MG, QD
  6. TYLENOL W/ CODEINE NO. 3 [Concomitant]
     Dosage: UNK, QID
  7. LUNESTA [Concomitant]
     Dosage: UNK
  8. STOOL SOFTENER [Concomitant]
     Dosage: UNK
  9. BUTRANS [Concomitant]
     Dosage: 5 UG, WEEKLY (1/W)
  10. DIOVAN [Concomitant]
     Dosage: 320 MG, QD
  11. ATENOLOL [Concomitant]
     Dosage: UNK, QD

REACTIONS (5)
  - MEDICATION ERROR [None]
  - FALL [None]
  - INTERVERTEBRAL DISC PROTRUSION [None]
  - INJECTION SITE HAEMATOMA [None]
  - FRACTURED COCCYX [None]
